FAERS Safety Report 14921131 (Version 11)
Quarter: 2020Q1

REPORT INFORMATION
  Report Type: Spontaneous
  Country: AU (occurrence: AU)
  Receive Date: 20180521
  Receipt Date: 20200130
  Transmission Date: 20200409
  Serious: Yes (Hospitalization, Other)
  Sender: FDA-Public Use
  Company Number: AU-ALEXION PHARMACEUTICALS INC.-A201802623

PATIENT
  Age: 26 Year
  Sex: Female

DRUGS (6)
  1. SOLIRIS [Suspect]
     Active Substance: ECULIZUMAB
     Dosage: UNK
     Route: 065
  2. MAGNESIUM SULFATE. [Concomitant]
     Active Substance: MAGNESIUM SULFATE
     Indication: PROPHYLAXIS
     Route: 065
  3. SOLIRIS [Suspect]
     Active Substance: ECULIZUMAB
     Dosage: 900 MG, QW
     Route: 042
     Dates: start: 201805, end: 201807
  4. FOLATE [Concomitant]
     Active Substance: FOLATE SODIUM
     Indication: PRODUCT USED FOR UNKNOWN INDICATION
     Route: 065
  5. SOLIRIS [Suspect]
     Active Substance: ECULIZUMAB
     Dosage: 1200 MG, Q2W
     Route: 042
  6. SOLIRIS [Suspect]
     Active Substance: ECULIZUMAB
     Indication: ATYPICAL HAEMOLYTIC URAEMIC SYNDROME
     Dosage: 900 MG, QW
     Route: 042

REACTIONS (27)
  - Endocarditis [Unknown]
  - Headache [Unknown]
  - Placental insufficiency [Unknown]
  - Urine albumin/creatinine ratio abnormal [Unknown]
  - Platelet count increased [Not Recovered/Not Resolved]
  - Drug ineffective [Not Recovered/Not Resolved]
  - Pre-eclampsia [Unknown]
  - End stage renal disease [Unknown]
  - Haptoglobin decreased [Recovering/Resolving]
  - Haemolysis [Recovered/Resolved]
  - Thrombocytopenia [Unknown]
  - Exposure during pregnancy [Recovered/Resolved]
  - Proteinuria [Not Recovered/Not Resolved]
  - Blood lactate dehydrogenase increased [Not Recovered/Not Resolved]
  - Hyperreflexia [Unknown]
  - Oedema [Unknown]
  - Nephrotic syndrome [Not Recovered/Not Resolved]
  - Blood creatinine increased [Not Recovered/Not Resolved]
  - Vision blurred [Unknown]
  - Visual impairment [Unknown]
  - Hypertension [Not Recovered/Not Resolved]
  - Anaemia [Not Recovered/Not Resolved]
  - Restlessness [Unknown]
  - Fluid retention [Unknown]
  - Haptoglobin increased [Unknown]
  - Red blood cell schistocytes present [Not Recovered/Not Resolved]
  - Incorrect dose administered [Not Recovered/Not Resolved]
